FAERS Safety Report 6387926-7 (Version None)
Quarter: 2009Q4

REPORT INFORMATION
  Report Type: 
  Country: None (occurrence: None)
  Receive Date: 20091005
  Receipt Date: 20090925
  Transmission Date: 20100525
  Serious: Yes (Hospitalization)
  Sender: FDA-Public Use
  Company Number: JP-NOVOPROD-291856

PATIENT
  Age: 69 Year
  Sex: Female
  Weight: 50 kg

DRUGS (4)
  1. LEVEMIR [Suspect]
     Indication: DIABETES MELLITUS
     Route: 058
     Dates: start: 20090915, end: 20090916
  2. NOVOLIN R [Suspect]
     Indication: DIABETES MELLITUS
     Dosage: 32 IU, QD
     Route: 058
     Dates: end: 20090912
  3. UNASYN                             /00903602/ [Concomitant]
     Dosage: 6 MG, QD
     Dates: start: 20090912, end: 20090914
  4. HUMULIN R [Concomitant]
     Dosage: 8 IU, QD
     Dates: start: 20090912, end: 20090914

REACTIONS (2)
  - DRUG ERUPTION [None]
  - HYPOGLYCAEMIA [None]
